FAERS Safety Report 12237761 (Version 13)
Quarter: 2019Q1

REPORT INFORMATION
  Report Type: Report from Study
  Country: CN (occurrence: CN)
  Receive Date: 20160405
  Receipt Date: 20190227
  Transmission Date: 20190417
  Serious: Yes (Other)
  Sender: FDA-Public Use
  Company Number: PHHY2016CN042747

PATIENT
  Age: 53 Year
  Sex: Male

DRUGS (113)
  1. AMIODARONE HYDROCHLORIDE. [Concomitant]
     Active Substance: AMIODARONE HYDROCHLORIDE
     Indication: ATRIAL FIBRILLATION
     Dosage: 0.6 G, 2
     Route: 042
     Dates: start: 20160219, end: 20160219
  2. FLUMAZENIL. [Concomitant]
     Active Substance: FLUMAZENIL
     Indication: ANAESTHESIA
     Dosage: 0.5 MG, ONCE/SINGLE
     Route: 042
     Dates: start: 20160218, end: 20160218
  3. FUROSEMIDE. [Concomitant]
     Active Substance: FUROSEMIDE
     Dosage: 20 MG, 1
     Route: 042
     Dates: start: 20160224
  4. GANCICLOVIR. [Concomitant]
     Active Substance: GANCICLOVIR
     Indication: INFECTION PROPHYLAXIS
     Dosage: 2 DF, TID
     Route: 048
     Dates: start: 20160302, end: 20160302
  5. GLYCERIN. [Concomitant]
     Active Substance: GLYCERIN
     Dosage: 110 ML, ONCE/SINGLE (5 VIAL)
     Route: 054
     Dates: start: 20160310, end: 20160310
  6. PANTOPRAZOLE SODIUM. [Concomitant]
     Active Substance: PANTOPRAZOLE SODIUM
     Dosage: 40 MG, 1
     Route: 042
     Dates: start: 20160218, end: 20160219
  7. PANTOPRAZOLE SODIUM. [Concomitant]
     Active Substance: PANTOPRAZOLE SODIUM
     Dosage: 40 MG, 1
     Route: 042
     Dates: start: 20160224, end: 20160225
  8. TORASEMIDE [Concomitant]
     Active Substance: TORSEMIDE
     Indication: POLYURIA
     Dosage: 10 MG, QD
     Route: 048
     Dates: start: 20160228
  9. TROPISETRON HYDROCHLORIDE [Concomitant]
     Active Substance: TROPISETRON HYDROCHLORIDE
     Indication: ANAESTHESIA
     Dosage: 15 MG, 1
     Route: 042
     Dates: start: 20160218, end: 20160218
  10. GEFARNATE [Concomitant]
     Active Substance: GEFARNATE
     Indication: PRODUCT USED FOR UNKNOWN INDICATION
     Dosage: UNK UNK, TID
     Route: 042
     Dates: start: 20160218, end: 20160224
  11. AMIODARONE HYDROCHLORIDE. [Concomitant]
     Active Substance: AMIODARONE HYDROCHLORIDE
     Indication: ATRIAL FIBRILLATION
     Dosage: UNK UNK, BID
     Route: 042
     Dates: start: 20160220, end: 20160221
  12. INSULIN [Concomitant]
     Active Substance: INSULIN NOS
     Dosage: 12 U, BID
     Route: 042
     Dates: start: 20160313
  13. MYFORTIC [Suspect]
     Active Substance: MYCOPHENOLATE SODIUM
     Dosage: 1260 MG, QD
     Route: 065
     Dates: start: 20160411, end: 20161110
  14. METHYLPREDNISOLONE. [Suspect]
     Active Substance: METHYLPREDNISOLONE
     Dosage: 500 MG, QD
     Route: 065
     Dates: start: 20160218, end: 20160218
  15. PREDNISONE. [Suspect]
     Active Substance: PREDNISONE
     Indication: PROPHYLAXIS AGAINST TRANSPLANT REJECTION
     Dosage: 30 MG, QD
     Route: 065
     Dates: start: 20160223, end: 20160301
  16. TACROLIMUS. [Suspect]
     Active Substance: TACROLIMUS
     Dosage: 5 MG, QD
     Route: 065
     Dates: start: 20160225, end: 20160227
  17. TACROLIMUS. [Suspect]
     Active Substance: TACROLIMUS
     Dosage: 5 MG, QD
     Route: 065
     Dates: start: 20160229, end: 20160229
  18. ADRENALINE HYDROCHLORIDE [Concomitant]
     Active Substance: EPINEPHRINE HYDROCHLORIDE
     Indication: PROPHYLAXIS
     Dosage: 2 MG, 1
     Route: 042
     Dates: start: 20160218, end: 20160218
  19. ATROPINE. [Concomitant]
     Active Substance: ATROPINE
     Indication: PROPHYLAXIS
     Dosage: 1 MG, 1
     Route: 042
     Dates: start: 20160218, end: 20160218
  20. CEFOPERAZONE SODIUM AND SULBACTAM SODIUM [Concomitant]
     Active Substance: CEFOPERAZONE SODIUM\SULBACTAM SODIUM
     Dosage: 1.5 G, BID
     Route: 042
     Dates: start: 20160225, end: 20160229
  21. DESLANOSIDE [Concomitant]
     Active Substance: DESLANOSIDE
     Indication: ATRIAL FIBRILLATION
     Dosage: 0.2 MG, ONCE/SINGLE
     Route: 042
     Dates: start: 20160219, end: 20160219
  22. MANNITOL. [Concomitant]
     Active Substance: MANNITOL
     Indication: POLYURIA
     Dosage: 250 ML, ONCE/SINGLE
     Route: 042
     Dates: start: 20160218, end: 20160218
  23. PANTOPRAZOLE SODIUM. [Concomitant]
     Active Substance: PANTOPRAZOLE SODIUM
     Dosage: 40 MG, BID
     Route: 042
     Dates: start: 20160225
  24. GLUTATHIONE [Concomitant]
     Active Substance: GLUTATHIONE
     Dosage: 1200 MG, 1
     Route: 042
     Dates: start: 20160221, end: 20160221
  25. GLUTATHIONE SODIUM [Concomitant]
     Active Substance: GLUTATHIONE
     Dosage: 1200 MG, 1
     Route: 042
     Dates: start: 20160223, end: 20160224
  26. SODIUM BICARBONATE. [Concomitant]
     Active Substance: SODIUM BICARBONATE
     Indication: ANTACID THERAPY
     Dosage: 250 ML, ONCE/SINGLE
     Route: 042
     Dates: start: 20160218, end: 20160218
  27. TORASEMIDE [Concomitant]
     Active Substance: TORSEMIDE
     Indication: POLYURIA
     Dosage: 10 MG, FREQUENCY: 2
     Route: 042
     Dates: start: 20160219, end: 20160219
  28. TRAMADOL HYDROCHLORIDE. [Concomitant]
     Active Substance: TRAMADOL HYDROCHLORIDE
     Indication: ANAESTHESIA
     Dosage: 0.1 G, 1
     Route: 042
     Dates: start: 20160218, end: 20160218
  29. MYFORTIC [Suspect]
     Active Substance: MYCOPHENOLATE SODIUM
     Dosage: 1440 MG, QD
     Route: 065
     Dates: start: 20160219, end: 20160219
  30. MYFORTIC [Suspect]
     Active Substance: MYCOPHENOLATE SODIUM
     Dosage: 1080 MG, QD
     Route: 065
     Dates: start: 20160220, end: 20160220
  31. MYFORTIC [Suspect]
     Active Substance: MYCOPHENOLATE SODIUM
     Dosage: 1080 MG, QD
     Route: 065
     Dates: start: 20160221, end: 20160221
  32. MYFORTIC [Suspect]
     Active Substance: MYCOPHENOLATE SODIUM
     Dosage: 1080 MG, QD
     Route: 065
     Dates: start: 20160222, end: 20160223
  33. MYFORTIC [Suspect]
     Active Substance: MYCOPHENOLATE SODIUM
     Dosage: 1440 MG, QD
     Route: 065
     Dates: start: 20160310, end: 20160313
  34. BASILIXIMAB [Suspect]
     Active Substance: BASILIXIMAB
     Indication: PROPHYLAXIS AGAINST TRANSPLANT REJECTION
     Dosage: 20 MG, QD
     Route: 065
     Dates: start: 20160217, end: 20160217
  35. METHYLPREDNISOLONE. [Suspect]
     Active Substance: METHYLPREDNISOLONE
     Dosage: 160 MG, QD
     Route: 065
     Dates: start: 20160224, end: 20160224
  36. PREDNISONE. [Suspect]
     Active Substance: PREDNISONE
     Dosage: 25 MG, QD
     Route: 065
     Dates: start: 20161014
  37. TACROLIMUS. [Suspect]
     Active Substance: TACROLIMUS
     Dosage: 7 MG, QD
     Route: 065
     Dates: start: 20160219, end: 20160219
  38. TACROLIMUS. [Suspect]
     Active Substance: TACROLIMUS
     Dosage: 5 MG, QD
     Route: 065
     Dates: start: 20160301, end: 20160301
  39. CEFDINIR. [Concomitant]
     Active Substance: CEFDINIR
     Indication: DIARRHOEA
     Dosage: 100 MG, TID
     Route: 048
     Dates: start: 20160302, end: 20160302
  40. CISATRACURIUM BESILATE [Concomitant]
     Active Substance: CISATRACURIUM BESYLATE
     Indication: ANAESTHESIA
     Dosage: 5 MG, 1
     Route: 042
     Dates: start: 20160218, end: 20160218
  41. HEPARIN SODIUM. [Concomitant]
     Active Substance: HEPARIN SODIUM
     Indication: DEVICE ISSUE
     Dosage: 25000 U, ONCE/SINGLE
     Route: 042
     Dates: start: 20160218, end: 20160218
  42. NIFEDIPINE. [Concomitant]
     Active Substance: NIFEDIPINE
     Indication: HYPERTENSION
     Dosage: 30 MG, QD
     Route: 048
     Dates: start: 20160222
  43. ROCURONIUM BROMIDE. [Concomitant]
     Active Substance: ROCURONIUM BROMIDE
     Indication: ANAESTHESIA
     Dosage: 100 MG, ONCE/SINGLE
     Route: 042
     Dates: start: 20160218, end: 20160218
  44. SULFADIAZINE W/SULFAMETHOXAZOLE/TRIMETHOPRIM [Concomitant]
     Indication: INFECTION PROPHYLAXIS
     Dosage: 0.96 G, BID
     Route: 048
     Dates: start: 20160302, end: 20160302
  45. MYFORTIC [Suspect]
     Active Substance: MYCOPHENOLATE SODIUM
     Dosage: 1440 MG, QD
     Route: 065
     Dates: start: 20161111, end: 20170110
  46. TACROLIMUS. [Suspect]
     Active Substance: TACROLIMUS
     Dosage: 6 MG, QD
     Route: 065
     Dates: start: 20160222, end: 20160222
  47. TACROLIMUS. [Suspect]
     Active Substance: TACROLIMUS
     Dosage: 5 MG, QD
     Route: 065
     Dates: start: 20160228, end: 20160228
  48. TACROLIMUS. [Suspect]
     Active Substance: TACROLIMUS
     Dosage: 11 MG, QD
     Route: 065
     Dates: start: 20160302, end: 20160302
  49. CEFOXITIN SODIUM [Concomitant]
     Active Substance: CEFOXITIN SODIUM
     Dosage: 2 G, BID
     Route: 042
     Dates: start: 20160310, end: 20160310
  50. CEFOXITIN SODIUM [Concomitant]
     Active Substance: CEFOXITIN SODIUM
     Dosage: 2 G, BID
     Route: 065
     Dates: start: 20160303, end: 20181003
  51. GANCICLOVIR. [Concomitant]
     Active Substance: GANCICLOVIR
     Dosage: 2 DF, TID
     Route: 048
     Dates: start: 20160310
  52. MAGNESIUM ISOGLYCYRRHIZINATE [Concomitant]
     Active Substance: MAGNESIUM ISOGLYCYRRHIZINATE
     Indication: HEPATIC FUNCTION ABNORMAL
     Dosage: 100 MG, 1
     Route: 042
     Dates: start: 20160225, end: 20160225
  53. NORADRENALIN//NOREPINEPHRINE BITARTRATE [Concomitant]
     Indication: HYPERTENSION
     Dosage: 4 MG, 1
     Route: 042
     Dates: start: 20160218, end: 20160218
  54. FAT EMULSION NOS [Concomitant]
     Active Substance: EGG PHOSPHOLIPIDS\SAFFLOWER OIL\SOYBEAN OIL
     Indication: NUTRITIONAL SUPPLEMENTATION
     Dosage: 1 DF, QD
     Route: 042
     Dates: start: 20160312, end: 20160313
  55. MYFORTIC [Suspect]
     Active Substance: MYCOPHENOLATE SODIUM
     Indication: PROPHYLAXIS AGAINST TRANSPLANT REJECTION
     Dosage: 1440 MG, QD
     Route: 065
     Dates: start: 20160218, end: 20160218
  56. MYFORTIC [Suspect]
     Active Substance: MYCOPHENOLATE SODIUM
     Dosage: 2880 MG, QD
     Route: 065
     Dates: start: 20160302, end: 20160302
  57. MYFORTIC [Suspect]
     Active Substance: MYCOPHENOLATE SODIUM
     Dosage: 1080 MG, QD
     Route: 065
     Dates: start: 20160303, end: 20160309
  58. MYFORTIC [Suspect]
     Active Substance: MYCOPHENOLATE SODIUM
     Dosage: 1260 MG, QD
     Route: 065
     Dates: start: 20160314, end: 20160327
  59. METHYLPREDNISOLONE. [Suspect]
     Active Substance: METHYLPREDNISOLONE
     Dosage: 160 MG, QD
     Route: 065
     Dates: start: 20160220, end: 20160220
  60. TACROLIMUS. [Suspect]
     Active Substance: TACROLIMUS
     Dosage: 10.5 MG, QD
     Route: 065
     Dates: start: 20160218, end: 20160218
  61. TACROLIMUS. [Suspect]
     Active Substance: TACROLIMUS
     Dosage: 6 MG, QD
     Route: 065
     Dates: start: 20160221, end: 20160221
  62. BACILLUS LICHENFORMIS [Concomitant]
     Indication: DIARRHOEA
     Dosage: 0.5 G, FREQUENCY: 2
     Route: 048
     Dates: start: 20160221, end: 20160221
  63. CEFOPERAZONE SODIUM AND SULBACTAM SODIUM [Concomitant]
     Active Substance: CEFOPERAZONE SODIUM\SULBACTAM SODIUM
     Dosage: 1.5 G, BID
     Route: 042
     Dates: start: 20160229
  64. DIPHENHYDRAMINE HYDROCHLORIDE. [Concomitant]
     Active Substance: DIPHENHYDRAMINE HYDROCHLORIDE
     Indication: VOMITING
     Dosage: 20 MG, 1
     Route: 030
     Dates: start: 20160221, end: 20160221
  65. GENTAMICIN SULFATE. [Concomitant]
     Active Substance: GENTAMICIN SULFATE
     Indication: ANTI-INFECTIVE THERAPY
     Dosage: 160000 IU, ONCE/SINGLE
     Route: 042
     Dates: start: 20160218, end: 20160218
  66. LACTULOSE. [Concomitant]
     Active Substance: LACTULOSE
     Indication: CONSTIPATION
     Dosage: 15 ML, FREQUENCY: 2
     Route: 048
     Dates: start: 20160219, end: 20160219
  67. GLUTATHIONE SODIUM [Concomitant]
     Active Substance: GLUTATHIONE
     Indication: PROPHYLAXIS
     Dosage: 1200 MG, 1
     Route: 042
     Dates: start: 20160218, end: 20160218
  68. SODIUM BICARBONATE. [Concomitant]
     Active Substance: SODIUM BICARBONATE
     Dosage: 4 DF, TID
     Route: 048
     Dates: start: 20160620
  69. SUCCINYLATED GELATIN [Concomitant]
     Active Substance: SUCCINYLATED GELATIN
     Dosage: 500 ML, 1
     Route: 042
     Dates: start: 20160218, end: 20160218
  70. SUFENTANIL CITRATE. [Concomitant]
     Active Substance: SUFENTANIL CITRATE
     Indication: ANAESTHESIA
     Dosage: 100 UG, 1
     Route: 042
     Dates: start: 20160218, end: 20160218
  71. SODIUM LACTATE. [Concomitant]
     Active Substance: SODIUM LACTATE
     Dosage: 5000 ML, ONCE/SINGLE
     Route: 042
     Dates: start: 20160218, end: 20160218
  72. PREDNISONE. [Suspect]
     Active Substance: PREDNISONE
     Dosage: 35 MG, QD
     Route: 065
     Dates: start: 20160302, end: 20160302
  73. TACROLIMUS. [Suspect]
     Active Substance: TACROLIMUS
     Dosage: 8 MG, QD
     Route: 065
     Dates: start: 20160310, end: 20160320
  74. TACROLIMUS. [Suspect]
     Active Substance: TACROLIMUS
     Dosage: 3 MG, QD
     Route: 065
     Dates: start: 20160606, end: 20160804
  75. AMIODARONE HYDROCHLORIDE. [Concomitant]
     Active Substance: AMIODARONE HYDROCHLORIDE
     Dosage: 0.6 G, 1
     Route: 042
     Dates: start: 20160220, end: 20160221
  76. GLYCERIN. [Concomitant]
     Active Substance: GLYCERIN
     Indication: CONSTIPATION PROPHYLAXIS
     Dosage: 110 ML, ONCE/SINGLE
     Route: 054
     Dates: start: 20160217, end: 20160217
  77. SMECTITE [Concomitant]
     Active Substance: MONTMORILLONITE
     Indication: DIARRHOEA
     Dosage: 6 G, ONCE/SINGLE
     Route: 048
     Dates: start: 20160221, end: 20160221
  78. SODIUM BICARBONATE. [Concomitant]
     Active Substance: SODIUM BICARBONATE
     Indication: ANTACID THERAPY
     Dosage: 0.5 G, ONCE/SINGLE
     Route: 048
     Dates: start: 20160302, end: 20160302
  79. OMEPRAZOLE SODIUM [Concomitant]
     Active Substance: OMEPRAZOLE SODIUM
     Indication: GASTROINTESTINAL DISORDER
     Dosage: 80 MG, BID
     Route: 042
     Dates: start: 20160310, end: 20160310
  80. MYFORTIC [Suspect]
     Active Substance: MYCOPHENOLATE SODIUM
     Dosage: 1440 MG, QD
     Route: 065
     Dates: start: 20160328, end: 20160410
  81. MYFORTIC [Suspect]
     Active Substance: MYCOPHENOLATE SODIUM
     Dosage: 1260 MG, QD
     Route: 065
     Dates: start: 20170111
  82. METHYLPREDNISOLONE. [Suspect]
     Active Substance: METHYLPREDNISOLONE
     Indication: PROPHYLAXIS AGAINST TRANSPLANT REJECTION
     Dosage: 500 MG, QD
     Route: 065
     Dates: start: 20160217, end: 20160217
  83. PREDNISONE. [Suspect]
     Active Substance: PREDNISONE
     Dosage: 20 MG, QD
     Route: 065
     Dates: start: 20160328, end: 20161013
  84. TACROLIMUS. [Suspect]
     Active Substance: TACROLIMUS
     Dosage: 6 MG, QD
     Route: 065
     Dates: start: 20160220, end: 20160222
  85. TACROLIMUS. [Suspect]
     Active Substance: TACROLIMUS
     Dosage: 5 MG, QD
     Route: 065
     Dates: start: 20160223, end: 20160224
  86. TACROLIMUS. [Suspect]
     Active Substance: TACROLIMUS
     Dosage: 10 MG, QD
     Route: 065
     Dates: start: 20160328, end: 20160331
  87. TACROLIMUS. [Suspect]
     Active Substance: TACROLIMUS
     Dosage: 6 MG, QD
     Route: 065
     Dates: start: 20160401, end: 20160605
  88. BACILLUS LICHENFORMIS [Concomitant]
     Dosage: 0.5 G, FREQUENCY: 3
     Route: 048
     Dates: start: 20160222, end: 20160224
  89. CEFOPERAZONE SODIUM AND SULBACTAM SODIUM [Concomitant]
     Active Substance: CEFOPERAZONE SODIUM\SULBACTAM SODIUM
     Dosage: 3 G, 1
     Route: 042
     Dates: start: 20160218, end: 20160219
  90. CEFOPERAZONE SODIUM AND SULBACTAM SODIUM [Concomitant]
     Active Substance: CEFOPERAZONE SODIUM\SULBACTAM SODIUM
     Dosage: 3 G, 1
     Route: 042
     Dates: start: 20160221, end: 20160222
  91. CEFOXITIN SODIUM [Concomitant]
     Active Substance: CEFOXITIN SODIUM
     Indication: ANTIBIOTIC PROPHYLAXIS
     Dosage: 2 G, 1
     Route: 065
     Dates: start: 20160217, end: 20160217
  92. FUROSEMIDE. [Concomitant]
     Active Substance: FUROSEMIDE
     Indication: POLYURIA
     Dosage: 20 MG, 1
     Route: 042
     Dates: start: 20160222, end: 20160222
  93. MIDAZOLAM [Concomitant]
     Active Substance: MIDAZOLAM HYDROCHLORIDE
     Indication: ANAESTHESIA
     Dosage: 5 MG, 1
     Route: 042
     Dates: start: 20160218, end: 20160218
  94. PANTOPRAZOLE SODIUM. [Concomitant]
     Active Substance: PANTOPRAZOLE SODIUM
     Indication: PROPHYLAXIS
     Dosage: 40 MG, 1
     Route: 042
     Dates: start: 20160218, end: 20160218
  95. INSULIN [Concomitant]
     Active Substance: INSULIN NOS
     Indication: BLOOD GLUCOSE DECREASED
     Dosage: UNK
     Route: 065
     Dates: start: 20160307, end: 20160317
  96. RACEANISODAMINE HYDROCHLORIDE [Concomitant]
     Indication: PAIN
     Dosage: 10 MG, QD
     Route: 030
     Dates: start: 20160312, end: 20160314
  97. MYFORTIC [Suspect]
     Active Substance: MYCOPHENOLATE SODIUM
     Indication: RENAL TRANSPLANT
     Dosage: 1440 MG, QD
     Route: 065
     Dates: start: 20160217, end: 20160217
  98. MYFORTIC [Suspect]
     Active Substance: MYCOPHENOLATE SODIUM
     Dosage: 1080 MG, QD
     Route: 065
     Dates: start: 20160228, end: 20160301
  99. METHYLPREDNISOLONE. [Suspect]
     Active Substance: METHYLPREDNISOLONE
     Dosage: 240 MG, QD
     Route: 065
     Dates: start: 20160219, end: 20160219
  100. TACROLIMUS. [Suspect]
     Active Substance: TACROLIMUS
     Indication: PROPHYLAXIS AGAINST TRANSPLANT REJECTION
     Dosage: 3.5 MG, QD
     Route: 065
     Dates: start: 20160217, end: 20160217
  101. PROPOFOL. [Concomitant]
     Active Substance: PROPOFOL
     Indication: ANAESTHESIA
     Dosage: 0.2 G, ONCE/SINGLE
     Route: 042
     Dates: start: 20160218, end: 20160218
  102. CALCIUM CARBONATE. [Concomitant]
     Active Substance: CALCIUM CARBONATE
     Indication: MINERAL SUPPLEMENTATION
     Dosage: 0.5 G, QD
     Route: 048
     Dates: start: 20160302, end: 20160302
  103. CEFOPERAZONE SODIUM AND SULBACTAM SODIUM [Concomitant]
     Active Substance: CEFOPERAZONE SODIUM\SULBACTAM SODIUM
     Indication: ANTI-INFECTIVE THERAPY
     Dosage: 3 G, 1
     Route: 042
     Dates: start: 20160218, end: 20160218
  104. HEPARIN SODIUM. [Concomitant]
     Active Substance: HEPARIN SODIUM
     Dosage: 37500 U, ONCE/SINGLE
     Route: 061
     Dates: start: 20160229, end: 20160229
  105. ISOSORBIDE MONONITRATE. [Concomitant]
     Active Substance: ISOSORBIDE MONONITRATE
     Indication: CARDIAC DISORDER
     Dosage: 50 MG, 1
     Route: 042
     Dates: start: 20160219, end: 20160219
  106. NEOSTIGMINE METHYLSULFATE. [Concomitant]
     Active Substance: NEOSTIGMINE METHYLSULFATE
     Indication: ANAESTHESIA
     Dosage: 2 MG, ONCE/SINGLE
     Route: 042
     Dates: start: 20160218, end: 20160218
  107. GLUTATHIONE [Concomitant]
     Active Substance: GLUTATHIONE
     Indication: PROPHYLAXIS
     Dosage: 1200 MG, 1
     Route: 042
     Dates: start: 20160218, end: 20160219
  108. REMIFENTANIL HYDROCHLORIDE. [Concomitant]
     Active Substance: REMIFENTANIL HYDROCHLORIDE
     Indication: ANAESTHESIA
     Dosage: 4 MG, 1
     Route: 042
     Dates: start: 20160218, end: 20160218
  109. SUCCINYLATED GELATIN [Concomitant]
     Active Substance: SUCCINYLATED GELATIN
     Indication: ANAESTHESIA
     Dosage: 1500 ML, 1
     Route: 042
     Dates: start: 20160218, end: 20160218
  110. SODIUM LACTATE. [Concomitant]
     Active Substance: SODIUM LACTATE
     Indication: FLUID REPLACEMENT
     Dosage: 1000 ML, ONCE/SINGLE
     Route: 042
     Dates: start: 20160218, end: 20160218
  111. SODIUM LACTATE. [Concomitant]
     Active Substance: SODIUM LACTATE
     Dosage: 500 ML, ONCE/SINGLE
     Route: 042
     Dates: start: 20160218, end: 20160219
  112. MYFORTIC [Suspect]
     Active Substance: MYCOPHENOLATE SODIUM
     Dosage: 1080 MG, QD
     Route: 065
     Dates: start: 20160224, end: 20160227
  113. METHYLPREDNISOLONE. [Suspect]
     Active Substance: METHYLPREDNISOLONE
     Dosage: 80 MG, QD
     Route: 065
     Dates: start: 20160221, end: 20160221

REACTIONS (21)
  - Urinary tract infection [Recovered/Resolved]
  - Hyperlipidaemia [Not Recovered/Not Resolved]
  - Blood glucose increased [Recovered/Resolved]
  - Blood albumin decreased [Recovered/Resolved with Sequelae]
  - Cholecystitis [Unknown]
  - Abdominal infection [Recovered/Resolved]
  - Chest pain [Recovered/Resolved with Sequelae]
  - Chest discomfort [Recovering/Resolving]
  - Supraventricular extrasystoles [Recovering/Resolving]
  - Brain natriuretic peptide increased [Not Recovered/Not Resolved]
  - Lymphocyte count increased [Recovered/Resolved]
  - Abdominal infection [Recovered/Resolved]
  - Cholecystitis [Recovered/Resolved]
  - Neutrophil count increased [Recovered/Resolved]
  - Urinary tract infection [Recovered/Resolved]
  - Intestinal obstruction [Recovered/Resolved]
  - Haemoglobin decreased [Recovered/Resolved with Sequelae]
  - Liver function test abnormal [Recovered/Resolved]
  - Abdominal distension [Recovered/Resolved]
  - Drug-induced liver injury [Not Recovered/Not Resolved]
  - Abdominal pain [Recovered/Resolved]

NARRATIVE: CASE EVENT DATE: 20160219
